FAERS Safety Report 9267505 (Version 1)
Quarter: 2013Q2

REPORT INFORMATION
  Report Type: Spontaneous
  Country: JP (occurrence: JP)
  Receive Date: 20130502
  Receipt Date: 20130502
  Transmission Date: 20140414
  Serious: Yes (Life-Threatening)
  Sender: FDA-Public Use
  Company Number: JP-TEVA-400467ISR

PATIENT
  Sex: 0

DRUGS (2)
  1. DIAZEPAM [Suspect]
     Indication: ANAESTHESIA
     Route: 064
  2. FENTANYL [Suspect]
     Indication: ANAESTHESIA
     Route: 064

REACTIONS (1)
  - Bradycardia foetal [Recovered/Resolved]
